FAERS Safety Report 21228805 (Version 2)
Quarter: 2022Q3

REPORT INFORMATION
  Report Type: Spontaneous
  Country: US (occurrence: US)
  Receive Date: 20220818
  Receipt Date: 20220819
  Transmission Date: 20221027
  Serious: No
  Sender: FDA-Public Use
  Company Number: US-PFIZER INC-202201067238

PATIENT
  Sex: Female

DRUGS (1)
  1. CORTEF [Suspect]
     Active Substance: HYDROCORTISONE
     Indication: Brain neoplasm
     Dosage: 5 MG, 2X/DAY(IN THE MORNING AND IN THE NIGHT)

REACTIONS (3)
  - Illness [Unknown]
  - Illness [Unknown]
  - Lethargy [Unknown]
